FAERS Safety Report 8116056-9 (Version None)
Quarter: 2012Q1

REPORT INFORMATION
  Report Type: 
  Country: None (occurrence: None)
  Receive Date: 20120201
  Receipt Date: 20120119
  Transmission Date: 20120608
  Serious: Yes (Hospitalization)
  Sender: FDA-Public Use
  Company Number: ACO_29197_2012

PATIENT
  Age: 51 Year
  Sex: Male

DRUGS (3)
  1. FAMPYRA (DALFAMPRIDINE) TABLET, 10MG [Suspect]
     Indication: MULTIPLE SCLEROSIS
     Dosage: 10 MG, QD, ORAL
     Route: 048
     Dates: start: 20110901, end: 20111101
  2. MICARDIS [Concomitant]
  3. IBUPROFEN [Concomitant]

REACTIONS (11)
  - CONDITION AGGRAVATED [None]
  - PROCTALGIA [None]
  - NAUSEA [None]
  - DIARRHOEA [None]
  - HEADACHE [None]
  - DIZZINESS [None]
  - PALPITATIONS [None]
  - ABDOMINAL PAIN UPPER [None]
  - FATIGUE [None]
  - BURNING SENSATION [None]
  - OROPHARYNGEAL PAIN [None]
